FAERS Safety Report 7119361-8 (Version None)
Quarter: 2010Q4

REPORT INFORMATION
  Report Type: 
  Country: None (occurrence: None)
  Receive Date: 20101123
  Receipt Date: 20101117
  Transmission Date: 20110411
  Serious: Yes (Hospitalization)
  Sender: FDA-Public Use
  Company Number: CA-US-EMD SERONO, INC.-7028070

PATIENT
  Sex: Female

DRUGS (7)
  1. REBIF [Suspect]
     Indication: RELAPSING-REMITTING MULTIPLE SCLEROSIS
     Dates: start: 20100517
  2. SOLU-MEDROL [Suspect]
  3. OESTROGEN [Concomitant]
  4. EFFEXOR [Concomitant]
  5. NEXIUM [Concomitant]
  6. SERC [Concomitant]
  7. AMANTADINE [Concomitant]

REACTIONS (2)
  - BLOOD PRESSURE INCREASED [None]
  - MULTIPLE SCLEROSIS RELAPSE [None]
